FAERS Safety Report 17558329 (Version 3)
Quarter: 2020Q2

REPORT INFORMATION
  Report Type: Spontaneous
  Country: US (occurrence: US)
  Receive Date: 20200318
  Receipt Date: 20200429
  Transmission Date: 20200713
  Serious: Yes (Other)
  Sender: FDA-Public Use
  Company Number: NVSC2020US073097

PATIENT
  Age: 90 Year
  Sex: Male

DRUGS (1)
  1. BEOVU [Suspect]
     Active Substance: BROLUCIZUMAB-DBLL
     Indication: NEOVASCULAR AGE-RELATED MACULAR DEGENERATION
     Dosage: 6 MG, QMO
     Route: 031
     Dates: start: 20200109, end: 20200109

REACTIONS (3)
  - Chorioretinitis [Recovering/Resolving]
  - Vitreous floaters [Recovered/Resolved]
  - Vitreal cells [Recovering/Resolving]

NARRATIVE: CASE EVENT DATE: 20200227
